FAERS Safety Report 9112308 (Version 1)
Quarter: 2013Q1

REPORT INFORMATION
  Report Type: Spontaneous
  Country: US (occurrence: US)
  Receive Date: 20130219
  Receipt Date: 20130219
  Transmission Date: 20140127
  Serious: No
  Sender: FDA-Public Use
  Company Number: US-BRISTOL-MYERS SQUIBB COMPANY-16852964

PATIENT
  Age: 59 Year
  Sex: Male

DRUGS (4)
  1. ORENCIA [Suspect]
     Indication: RHEUMATOID ARTHRITIS
     Dosage: LAST INFUISON: 17JUL12,1AUG12,08AUG12
     Route: 042
     Dates: start: 20120702
  2. PLAQUENIL [Suspect]
     Indication: RHEUMATOID ARTHRITIS
     Dates: start: 200804
  3. PREDNISONE [Suspect]
     Indication: RHEUMATOID ARTHRITIS
  4. ARAVA [Suspect]
     Indication: RHEUMATOID ARTHRITIS
     Dates: start: 201112

REACTIONS (5)
  - Joint swelling [Not Recovered/Not Resolved]
  - Alopecia [Unknown]
  - Contusion [Unknown]
  - Haemorrhage [Unknown]
  - Drug ineffective [Unknown]
